FAERS Safety Report 16821320 (Version 2)
Quarter: 2019Q4

REPORT INFORMATION
  Report Type: Report from Study
  Country: US (occurrence: US)
  Receive Date: 20190918
  Receipt Date: 20191204
  Transmission Date: 20200122
  Serious: Yes (Hospitalization)
  Sender: FDA-Public Use
  Company Number: PHEH2019US037665

PATIENT
  Sex: Female

DRUGS (4)
  1. PIQRAY [Suspect]
     Active Substance: ALPELISIB
     Dosage: 250 MG, QD
     Route: 048
  2. PIQRAY [Suspect]
     Active Substance: ALPELISIB
     Dosage: 300 MG, QD
     Route: 048
  3. PIQRAY [Suspect]
     Active Substance: ALPELISIB
     Dosage: UNK
     Route: 048
  4. PIQRAY [Suspect]
     Active Substance: ALPELISIB
     Indication: PRODUCT USED FOR UNKNOWN INDICATION
     Route: 048

REACTIONS (11)
  - Vomiting [Unknown]
  - Decreased appetite [Unknown]
  - Ageusia [Unknown]
  - Diarrhoea [Unknown]
  - Oesophagitis [Unknown]
  - Nausea [Unknown]
  - Blood glucose increased [Unknown]
  - Alopecia [Unknown]
  - Dyspepsia [Unknown]
  - Dehydration [Unknown]
  - Renal disorder [Unknown]
